FAERS Safety Report 4943481-7 (Version None)
Quarter: 2006Q1

REPORT INFORMATION
  Report Type: 
  Country: None (occurrence: None)
  Receive Date: 20060314
  Receipt Date: 20050609
  Transmission Date: 20060701
  Serious: Yes (Other)
  Sender: FDA-Public Use
  Company Number: HQWYE501016JUN05

PATIENT
  Sex: Female

DRUGS (10)
  1. ENBREL [Suspect]
     Indication: RHEUMATOID ARTHRITIS
     Route: 058
     Dates: start: 20030910, end: 20060101
  2. METHOTREXATE [Suspect]
     Route: 048
  3. PREDNISOLONE [Concomitant]
     Indication: RHEUMATOID ARTHRITIS
     Dosage: 7.5 MG/DAY, TABLET
     Route: 048
  4. PREDNISOLONE [Concomitant]
     Route: 048
  5. COVERSYL [Concomitant]
     Indication: HYPERTENSION
     Dosage: UNKNOWN, TABLET
     Route: 048
  6. SOMAC [Concomitant]
     Dosage: UNKNOWN, TABLET
     Route: 048
  7. IRBESARTAN - HYDROCHLOROTHIAZIDE [Concomitant]
     Route: 048
  8. DICLOXACILLIN SODIUM MONOHYDRATE [Concomitant]
  9. ANTIHISTAMINES [Concomitant]
  10. CLOTRIMAZOLE [Concomitant]

REACTIONS (4)
  - BRONCHOPNEUMONIA [None]
  - CONDITION AGGRAVATED [None]
  - NEUTROPHIL COUNT DECREASED [None]
  - RHEUMATOID ARTHRITIS [None]
